FAERS Safety Report 21554258 (Version 1)
Quarter: 2022Q4

REPORT INFORMATION
  Report Type: Report from Study
  Country: AU (occurrence: None)
  Receive Date: 20221104
  Receipt Date: 20221104
  Transmission Date: 20230112
  Serious: Yes (Other)
  Sender: FDA-Public Use
  Company Number: AU-ROCHE-3157491

PATIENT
  Age: 48 Year
  Sex: Male
  Weight: 96 kg

DRUGS (23)
  1. RITUXIMAB [Suspect]
     Active Substance: RITUXIMAB
     Indication: Diffuse large B-cell lymphoma
     Route: 042
     Dates: start: 20220722, end: 20220722
  2. CYCLOPHOSPHAMIDE [Suspect]
     Active Substance: CYCLOPHOSPHAMIDE
     Indication: Diffuse large B-cell lymphoma
     Route: 042
     Dates: start: 20220722, end: 20220722
  3. VINCRISTINE [Suspect]
     Active Substance: VINCRISTINE
     Indication: Diffuse large B-cell lymphoma
     Route: 042
     Dates: start: 20220722, end: 20220722
  4. DOXORUBICIN [Suspect]
     Active Substance: DOXORUBICIN
     Indication: Diffuse large B-cell lymphoma
     Route: 042
     Dates: start: 20220722, end: 20220722
  5. PREDNISOLONE [Suspect]
     Active Substance: PREDNISOLONE
     Indication: Diffuse large B-cell lymphoma
     Route: 048
     Dates: start: 20220722, end: 20220726
  6. CODEINE [Concomitant]
     Active Substance: CODEINE
  7. ALLOPURINOL [Concomitant]
     Active Substance: ALLOPURINOL
  8. PANTOPRAZOLE [Concomitant]
     Active Substance: PANTOPRAZOLE
  9. OXYCODONE [Concomitant]
     Active Substance: OXYCODONE
  10. TAPENTADOL [Concomitant]
     Active Substance: TAPENTADOL
  11. DIAZEPAM [Concomitant]
     Active Substance: DIAZEPAM
  12. ACETAMINOPHEN [Concomitant]
     Active Substance: ACETAMINOPHEN
  13. AMOXICILLIN [Concomitant]
     Active Substance: AMOXICILLIN
  14. AZITHROMYCIN [Concomitant]
     Active Substance: AZITHROMYCIN
  15. IBUPROFEN [Concomitant]
     Active Substance: IBUPROFEN
  16. LIPEGFILGRASTIM [Concomitant]
     Active Substance: LIPEGFILGRASTIM
  17. ONDANSETRON [Concomitant]
     Active Substance: ONDANSETRON
  18. MOVICOL [Concomitant]
     Active Substance: POLYETHYLENE GLYCOL 3350\POTASSIUM CHLORIDE\SODIUM BICARBONATE\SODIUM CHLORIDE
  19. ENOXAPARIN [Concomitant]
     Active Substance: ENOXAPARIN
  20. PIPERACILLIN SODIUM\TAZOBACTAM SODIUM [Concomitant]
     Active Substance: PIPERACILLIN SODIUM\TAZOBACTAM SODIUM
  21. SODIUM CHLORIDE [Concomitant]
     Active Substance: SODIUM CHLORIDE
  22. GASTROGEL (AUSTRALIA) [Concomitant]
  23. AUGMENTIN [Concomitant]
     Active Substance: AMOXICILLIN\CLAVULANATE POTASSIUM

REACTIONS (1)
  - COVID-19 [Not Recovered/Not Resolved]

NARRATIVE: CASE EVENT DATE: 20220807
